FAERS Safety Report 5822799-X (Version None)
Quarter: 2008Q3

REPORT INFORMATION
  Report Type: 
  Country: None (occurrence: None)
  Receive Date: 20080725
  Receipt Date: 20080715
  Transmission Date: 20090109
  Serious: Yes (Death, Life-Threatening, Other)
  Sender: FDA-Public Use
  Company Number: GB-JNJFOC-20080704147

PATIENT
  Sex: Female
  Weight: 52 kg

DRUGS (11)
  1. REMICADE [Suspect]
     Indication: RHEUMATOID ARTHRITIS
     Route: 042
  2. METHOTREXATE SODIUM [Concomitant]
  3. PREDNISOLONE [Concomitant]
  4. CALCIT [Concomitant]
  5. PHENYTOIN SODIUM CAP [Concomitant]
  6. FOLIC ACID [Concomitant]
  7. INSULIN [Concomitant]
  8. PHENOBARBITONE [Concomitant]
  9. RALOXIFENE HCL [Concomitant]
  10. TAGAMET [Concomitant]
  11. VOLTAREN [Concomitant]

REACTIONS (1)
  - DEATH [None]
